FAERS Safety Report 25422922 (Version 1)
Quarter: 2025Q2

REPORT INFORMATION
  Report Type: Spontaneous
  Country: ZA (occurrence: ZA)
  Receive Date: 20250611
  Receipt Date: 20250611
  Transmission Date: 20250717
  Serious: Yes (Other)
  Sender: ORGANON
  Company Number: ZA-ORGANON-O2506ZAF000485

PATIENT
  Sex: Female

DRUGS (12)
  1. COZAAR [Suspect]
     Active Substance: LOSARTAN POTASSIUM
     Dosage: 12.5 MILLIGRAM, QD
     Route: 048
  2. APIXABAN [Suspect]
     Active Substance: APIXABAN
     Dosage: 5 MILLIGRAM, 2 EVERY 1 DAY
  3. ESTRADIOL [Suspect]
     Active Substance: ESTRADIOL
     Dosage: 1 MILLIGRAM, 1 EVERY 1 DAY
  4. DIETARY SUPPLEMENT [Suspect]
     Active Substance: DIETARY SUPPLEMENT
     Dosage: 20 MILLIGRAM, 1 EVERY 1 DAY
  5. DORMONOCT [Suspect]
     Active Substance: LOPRAZOLAM
  6. ESCITALOPRAM OXALATE [Suspect]
     Active Substance: ESCITALOPRAM OXALATE
     Dosage: 10 MILLIGRAM, 1 EVERY 1 DAY (EXTERNAL)
  7. OMEPRAZOLE [Suspect]
     Active Substance: OMEPRAZOLE
     Dosage: 20 MILLIGRAM, 1 EVERY 1 DAY
  8. FUROSEMIDE [Suspect]
     Active Substance: FUROSEMIDE
     Dosage: 40 MILLIGRAM, 1 EVERY 1 DAY
  9. FLUTICASONE PROPIONATE\SALMETEROL XINAFOATE [Suspect]
     Active Substance: FLUTICASONE PROPIONATE\SALMETEROL XINAFOATE
     Dosage: 250 MICROGRAM, 2 EVERY 1 DAY (RESPIRATORY (INHALATION))
  10. SPIRONOLACTONE [Suspect]
     Active Substance: SPIRONOLACTONE
     Dosage: 25 MILLIGRAM, 1 EVERY 1 DAY
  11. FUROSEMIDE [Suspect]
     Active Substance: FUROSEMIDE
     Dosage: 20 MILLIGRAM, 1 EVERY 1 DAY (EXTERNAL)
  12. ISOPTIN [Suspect]
     Active Substance: VERAPAMIL HYDROCHLORIDE
     Dosage: 220 MILLIGRAM, 1 EVERY 1 DAY

REACTIONS (11)
  - Atrial fibrillation [Unknown]
  - Pneumonia [Unknown]
  - Renal impairment [Unknown]
  - Pneumonia parainfluenzae viral [Unknown]
  - Haemophilia [Unknown]
  - Peripheral swelling [Unknown]
  - Laryngitis fungal [Unknown]
  - Dyspnoea exertional [Unknown]
  - Palpitations [Unknown]
  - Underdose [Unknown]
  - Wrong technique in product usage process [Unknown]
